FAERS Safety Report 9316718 (Version 1)
Quarter: 2013Q2

REPORT INFORMATION
  Report Type: Spontaneous
  Country: US (occurrence: None)
  Receive Date: 20130528
  Receipt Date: 20130528
  Transmission Date: 20140414
  Serious: Yes (Life-Threatening, Hospitalization)
  Sender: FDA-Public Use
  Company Number: None

PATIENT
  Age: 70 Year
  Sex: Female
  Weight: 80.29 kg

DRUGS (2)
  1. PRAMIPEXOLE [Suspect]
     Indication: RESTLESS LEGS SYNDROME
     Dosage: ONE TABLET NIGHTLY
     Route: 048
     Dates: start: 20100707, end: 20130418
  2. PRAMIPEXOLE [Suspect]
     Dosage: ONE TABLET NIGHTLY
     Route: 048

REACTIONS (8)
  - Supraventricular tachycardia [None]
  - Muscle spasms [None]
  - Myalgia [None]
  - Influenza [None]
  - Gambling [None]
  - Binge eating [None]
  - Weight increased [None]
  - Loss of consciousness [None]
